FAERS Safety Report 19625063 (Version 1)
Quarter: 2021Q3

REPORT INFORMATION
  Report Type: Spontaneous
  Country: US (occurrence: US)
  Receive Date: 20210729
  Receipt Date: 20210729
  Transmission Date: 20211014
  Serious: Yes (Other)
  Sender: FDA-Public Use
  Company Number: US-LUPIN PHARMACEUTICALS INC.-2021-13066

PATIENT
  Age: 37 Year
  Sex: Male

DRUGS (6)
  1. METHYLPREDNISOLONE. [Suspect]
     Active Substance: METHYLPREDNISOLONE
     Indication: EOSINOPHILIC FASCIITIS
     Dosage: 1000 MILLIGRAM, QD
     Route: 042
  2. IMMUNOGLOBULIN HUMAN [Suspect]
     Active Substance: HUMAN IMMUNOGLOBULIN G
     Indication: EOSINOPHILIC FASCIITIS
     Dosage: 2 GRAM PER KILOGRAM
     Route: 042
  3. METHOTREXATE. [Suspect]
     Active Substance: METHOTREXATE
     Indication: EOSINOPHILIC FASCIITIS
     Dosage: 25 MILLIGRAM
     Route: 065
  4. PREDNISONE. [Suspect]
     Active Substance: PREDNISONE
     Indication: EOSINOPHILIC FASCIITIS
     Dosage: 60 MILLIGRAM
     Route: 065
  5. MYCOPHENOLATE MOFETIL. [Suspect]
     Active Substance: MYCOPHENOLATE MOFETIL
     Indication: EOSINOPHILIC FASCIITIS
     Dosage: 2 GRAM, QD
     Route: 065
  6. BARICITINIB. [Concomitant]
     Active Substance: BARICITINIB
     Indication: EOSINOPHILIC FASCIITIS
     Dosage: UNK
     Route: 065

REACTIONS (2)
  - Off label use [None]
  - Drug ineffective for unapproved indication [Unknown]
